FAERS Safety Report 15334483 (Version 2)
Quarter: 2020Q3

REPORT INFORMATION
  Report Type: Report from Study
  Country: JP (occurrence: JP)
  Receive Date: 20180830
  Receipt Date: 20190402
  Transmission Date: 20201105
  Serious: Yes (Hospitalization, Other)
  Sender: FDA-Public Use
  Company Number: JP-ROCHE-1801878

PATIENT
  Age: 67 Year
  Sex: Female
  Weight: 53 kg

DRUGS (14)
  1. RABEPRAZOLE SODIUM. [Concomitant]
     Active Substance: RABEPRAZOLE SODIUM
     Route: 048
  2. ALFAROL [Concomitant]
     Active Substance: ALFACALCIDOL
     Route: 048
  3. AMOBANTES [Concomitant]
     Dosage: TAKEN AS NEEDED
     Route: 048
  4. KREMEZIN [Concomitant]
     Active Substance: ACTIVATED CHARCOAL
     Route: 048
  5. ALECTINIB. [Suspect]
     Active Substance: ALECTINIB
     Indication: LUNG ADENOCARCINOMA
     Route: 048
     Dates: start: 20151214
  6. REBAMIPIDE [Concomitant]
     Active Substance: REBAMIPIDE
     Route: 048
  7. PERSANTIN [Concomitant]
     Active Substance: DIPYRIDAMOLE
     Route: 048
  8. ISODINE [Concomitant]
     Active Substance: POVIDONE-IODINE
     Dosage: DOSAGE IS UNCERTAIN.
     Route: 049
  9. ALECTINIB. [Suspect]
     Active Substance: ALECTINIB
     Indication: LUNG ADENOCARCINOMA
     Dosage: MOST RECENT DOSE: 04/OCT/2015
     Route: 048
     Dates: start: 20140929
  10. DAIPHEN [Suspect]
     Active Substance: SULFAMETHOXAZOLE\TRIMETHOPRIM
     Indication: PRODUCT USED FOR UNKNOWN INDICATION
     Route: 065
  11. PURSENNID [Concomitant]
     Dosage: TAKEN AS NEEDED
     Route: 048
  12. HUSTAZOL (CLOPERASTINE FENDIZOATE) [Concomitant]
     Route: 048
  13. HALIZON [Concomitant]
     Active Substance: AMPHOTERICIN B
     Dosage: DOSAGE IS UNCERTAIN.
     Route: 048
  14. FEBURIC [Concomitant]
     Active Substance: FEBUXOSTAT
     Route: 048

REACTIONS (7)
  - Pancreatitis acute [Unknown]
  - Chronic kidney disease [Unknown]
  - Anaemia [Unknown]
  - Nephritis [Unknown]
  - Nephrotic syndrome [Not Recovered/Not Resolved]
  - Proteinuria [Recovering/Resolving]
  - Myocardial ischaemia [Unknown]

NARRATIVE: CASE EVENT DATE: 20151005
